FAERS Safety Report 20916902 (Version 2)
Quarter: 2022Q2

REPORT INFORMATION
  Report Type: Report from Study
  Country: BR (occurrence: BR)
  Receive Date: 20220605
  Receipt Date: 20220613
  Transmission Date: 20220721
  Serious: Yes (Hospitalization)
  Sender: FDA-Public Use
  Company Number: BR-BIOGEN-2022BI01128363

PATIENT
  Sex: Female
  Weight: 95 kg

DRUGS (1)
  1. TYSABRI [Suspect]
     Active Substance: NATALIZUMAB
     Indication: Multiple sclerosis
     Route: 042
     Dates: end: 2019

REACTIONS (4)
  - Thyroid disorder [Not Recovered/Not Resolved]
  - Drug intolerance [Unknown]
  - Lymphocyte count decreased [Not Recovered/Not Resolved]
  - Hypertonic bladder [Unknown]

NARRATIVE: CASE EVENT DATE: 20160101
